FAERS Safety Report 4595566-5 (Version None)
Quarter: 2005Q1

REPORT INFORMATION
  Report Type: 
  Country: None (occurrence: None)
  Receive Date: 20050224
  Receipt Date: 20050107
  Transmission Date: 20050727
  Serious: Yes (Hospitalization, Other)
  Sender: FDA-Public Use
  Company Number: US_0405103189

PATIENT
  Age: 38 Year
  Sex: Female
  Weight: 91 kg

DRUGS (35)
  1. HUMULIN N [Suspect]
     Dosage: 40 U
     Dates: start: 19970401
  2. ZYPREXA [Suspect]
     Indication: SCHIZOPHRENIA
     Dates: start: 20010101
  3. HUMULIN 70/30 [Concomitant]
  4. IBUPROFEN [Concomitant]
  5. DIPHENHYDRAMINE HCL [Concomitant]
  6. ACETAMINOPHEN W/ PROPOXYPHENE HCL [Concomitant]
  7. CYCLOBENZAPRINE HCL [Concomitant]
  8. ZESTRIL [Concomitant]
  9. ZITHROMAX [Concomitant]
  10. ADVAIR DISKUS 100/50 [Concomitant]
  11. PREVACID [Concomitant]
  12. AMOXICILLIN [Concomitant]
  13. CEPHALEXIN [Concomitant]
  14. BUTALBITAL, ACETAMINOPHEN, CAFFEINE [Concomitant]
  15. CIPRO [Concomitant]
  16. BETAMETHASONE DIPROPIONATE W/CLOTRIMAZOLE [Concomitant]
  17. CELEBREX [Concomitant]
  18. ORPHENADRINE CITRATE [Concomitant]
  19. NOVOLIN R [Concomitant]
  20. PHENTERMINE [Concomitant]
  21. SULFAMETHOXYPYRAZINE/TRIMETHOPRIM [Concomitant]
  22. POTASSIUM CHLORIDE [Concomitant]
  23. HYDROCHLOROTHIAZIDE [Concomitant]
  24. BEXTRA [Concomitant]
  25. NEURONTIN [Concomitant]
  26. DIFLUCAN [Concomitant]
  27. OXYBUTYNIN [Concomitant]
  28. PHENAZOPYRIDINE [Concomitant]
  29. NOVOLIN 70/30 [Concomitant]
  30. AVANDIA [Concomitant]
  31. LOTREL [Concomitant]
  32. WELLBUTRIN [Concomitant]
  33. STELAZINE [Concomitant]
  34. GLUCOVANCE [Concomitant]
  35. ORAL CONTRACEPTIVE NOS [Concomitant]

REACTIONS (26)
  - BACK PAIN [None]
  - BLOOD UREA DECREASED [None]
  - BODY MASS INDEX INCREASED [None]
  - BURSITIS [None]
  - CHEST INJURY [None]
  - CHEST WALL PAIN [None]
  - DIABETES MELLITUS INADEQUATE CONTROL [None]
  - DYSMENORRHOEA [None]
  - ESSENTIAL HYPERTENSION [None]
  - EXCORIATION [None]
  - GENERAL PHYSICAL HEALTH DETERIORATION [None]
  - HAEMATURIA [None]
  - HYPERTENSION [None]
  - HYPOKALAEMIA [None]
  - MYOSITIS [None]
  - PCO2 DECREASED [None]
  - ROAD TRAFFIC ACCIDENT [None]
  - SCHIZOPHRENIA [None]
  - SOMNOLENCE [None]
  - STERNAL FRACTURE [None]
  - TORTICOLLIS [None]
  - TRIGONITIS [None]
  - URETHRAL STRICTURE [None]
  - URINARY TRACT INFECTION [None]
  - URINE LEUKOCYTE ESTERASE POSITIVE [None]
  - VAGINAL MYCOSIS [None]
